FAERS Safety Report 6597770-3 (Version None)
Quarter: 2010Q1

REPORT INFORMATION
  Report Type: 
  Country: None (occurrence: None)
  Receive Date: 20100216
  Receipt Date: 20100216
  Transmission Date: 20100710
  Serious: Yes (Hospitalization)
  Sender: FDA-Public Use
  Company Number: 2010SP007528

PATIENT
  Age: 53 Year
  Sex: Female

DRUGS (2)
  1. ORGARAN [Suspect]
     Indication: DRUG USE FOR UNKNOWN INDICATION
     Dosage: SC
     Route: 058
     Dates: start: 20100110, end: 20100114
  2. LOVENOX [Suspect]
     Indication: DRUG USE FOR UNKNOWN INDICATION
     Dosage: 0.4 ML; QD; SC
     Route: 058
     Dates: start: 20100110, end: 20100114

REACTIONS (1)
  - INJECTION SITE REACTION [None]
